FAERS Safety Report 4711920-2 (Version None)
Quarter: 2005Q2

REPORT INFORMATION
  Report Type: 
  Country: None (occurrence: None)
  Receive Date: 20050629
  Receipt Date: 20050509
  Transmission Date: 20051028
  Serious: No
  Sender: FDA-Public Use
  Company Number: 05P-163-0300196-00

PATIENT
  Age: 68 Year
  Sex: Female
  Weight: 46.2669 kg

DRUGS (11)
  1. HUMIRA [Suspect]
     Indication: RHEUMATOID ARTHRITIS
     Dosage: 40 MG, SUBCUTANEOUS
     Route: 058
     Dates: start: 20050427
  2. METHOTREXATE [Suspect]
     Indication: RHEUMATOID ARTHRITIS
     Dosage: 2.5 MG, 8 IN 1 WK, PER ORAL
     Route: 048
  3. CALCIUM CARBONATE [Concomitant]
  4. FOLIC ACID [Concomitant]
  5. MULTIVITAMIN [Concomitant]
  6. ASPIRIN [Concomitant]
  7. ASCORBIC ACID [Concomitant]
  8. PROVELLA-14 [Concomitant]
  9. ADLACT [Concomitant]
  10. ATONOLOL [Concomitant]
  11. SULDINAC [Concomitant]

REACTIONS (1)
  - ARTHRITIS [None]
